FAERS Safety Report 16837563 (Version 2)
Quarter: 2022Q1

REPORT INFORMATION
  Report Type: Spontaneous
  Country: RO (occurrence: RO)
  Receive Date: 20190923
  Receipt Date: 20220221
  Transmission Date: 20220424
  Serious: Yes (Other)
  Sender: FDA-Public Use
  Company Number: RO-TEVA-2019-RO-1112060

PATIENT
  Age: 6 Year
  Sex: Female

DRUGS (21)
  1. CYCLOPHOSPHAMIDE [Suspect]
     Active Substance: CYCLOPHOSPHAMIDE
     Indication: Acute lymphocytic leukaemia
     Route: 065
  2. DOXORUBICIN [Suspect]
     Active Substance: DOXORUBICIN
     Indication: Acute lymphocytic leukaemia
     Route: 065
  3. LEUCOVORIN [Suspect]
     Active Substance: LEUCOVORIN
     Indication: Acute lymphocytic leukaemia
     Route: 065
  4. METHOTREXATE [Suspect]
     Active Substance: METHOTREXATE
     Indication: Acute lymphocytic leukaemia
     Route: 065
  5. VINCRISTINE [Suspect]
     Active Substance: VINCRISTINE
     Indication: Acute lymphocytic leukaemia
     Route: 065
  6. ZOLEDRONIC ACID [Suspect]
     Active Substance: ZOLEDRONIC ACID
     Indication: Hypercalcaemia
     Route: 042
  7. ETOPOSIDE [Suspect]
     Active Substance: ETOPOSIDE
     Indication: Acute lymphocytic leukaemia
     Route: 065
  8. ASPARAGINASE [Suspect]
     Active Substance: ASPARAGINASE
     Indication: Acute lymphocytic leukaemia
     Route: 065
  9. CYTARABINE [Suspect]
     Active Substance: CYTARABINE
     Indication: Acute lymphocytic leukaemia
     Route: 065
  10. DAUNORUBICIN [Suspect]
     Active Substance: DAUNORUBICIN
     Indication: Acute lymphocytic leukaemia
     Route: 065
  11. DEXAMETHASONE [Suspect]
     Active Substance: DEXAMETHASONE
     Indication: Acute lymphocytic leukaemia
     Route: 065
  12. IFOSFAMIDE [Suspect]
     Active Substance: IFOSFAMIDE
     Indication: Acute lymphocytic leukaemia
     Route: 065
  13. MERCAPTOPURINE [Suspect]
     Active Substance: MERCAPTOPURINE
     Indication: Acute lymphocytic leukaemia
     Route: 065
  14. PREDNISONE [Suspect]
     Active Substance: PREDNISONE
     Indication: Acute lymphocytic leukaemia
     Route: 065
  15. THIOGUANINE ANHYDROUS [Suspect]
     Active Substance: THIOGUANINE ANHYDROUS
     Indication: Acute lymphocytic leukaemia
     Route: 065
  16. VINDESINE [Suspect]
     Active Substance: VINDESINE
     Indication: Acute lymphocytic leukaemia
     Route: 065
  17. CALCITONIN [Suspect]
     Active Substance: CALCITONIN
     Indication: Hypercalcaemia
     Dosage: 4UI/KG EVERY 12 HOURS
     Route: 030
  18. CLOFARABINE [Suspect]
     Active Substance: CLOFARABINE
     Indication: Acute lymphocytic leukaemia
     Route: 065
  19. FUROSEMIDE [Concomitant]
     Active Substance: FUROSEMIDE
     Indication: Hypercalcaemia
     Dosage: 1 MG/KG DAILY;
     Route: 065
  20. FUROSEMIDE [Concomitant]
     Active Substance: FUROSEMIDE
     Indication: Hypercalcaemia
     Route: 065
  21. CLODRONATE DISODIUM [Concomitant]
     Active Substance: CLODRONATE DISODIUM
     Indication: Hypercalcaemia
     Route: 048

REACTIONS (9)
  - Pancytopenia [Unknown]
  - Decubitus ulcer [Unknown]
  - Necrosis [Unknown]
  - Fungal infection [Unknown]
  - Sepsis [Unknown]
  - Multiple organ dysfunction syndrome [Unknown]
  - Hypocalcaemia [Recovering/Resolving]
  - Vision blurred [Unknown]
  - Drug ineffective [Unknown]
